FAERS Safety Report 4382676-0 (Version None)
Quarter: 2004Q2

REPORT INFORMATION
  Report Type: 
  Country: None (occurrence: None)
  Receive Date: 20040616
  Receipt Date: 20040607
  Transmission Date: 20050107
  Serious: Yes (Other)
  Sender: FDA-Public Use
  Company Number: US-SHR-03-017328

PATIENT
  Age: 38 Year
  Sex: Female

DRUGS (11)
  1. BETASERON [Suspect]
     Indication: MULTIPLE SCLEROSIS
     Dosage: 8 MIU, EVERY 2D, SUBCUTANEOUS
     Route: 058
     Dates: start: 19950501
  2. BACLOFEN [Concomitant]
  3. OXYBUTYNIN [Concomitant]
  4. PAXIL [Concomitant]
  5. DANTRIUM [Concomitant]
  6. VALIUM/NET/(DIAZEPAM) [Concomitant]
  7. RITALIN/UNK/METHYLPHENIDATE HYDROCHLORIDE) [Concomitant]
  8. ADVIL [Concomitant]
  9. VITAMIN E [Concomitant]
  10. EVENING PRIMROSE OIL (EVENING PRIMROSE OIL) [Concomitant]
  11. IMITREX ^GLAXO^ (SUMATRIPTAN) [Concomitant]

REACTIONS (9)
  - ALOPECIA [None]
  - BENIGN NEOPLASM OF THYROID GLAND [None]
  - BLOOD CALCIUM INCREASED [None]
  - BLOOD PARATHYROID HORMONE INCREASED [None]
  - MALABSORPTION [None]
  - MULTIPLE SCLEROSIS [None]
  - PRURITUS [None]
  - THYROID GLAND CANCER [None]
  - WEIGHT DECREASED [None]
